FAERS Safety Report 20770225 (Version 1)
Quarter: 2022Q2

REPORT INFORMATION
  Report Type: Spontaneous
  Country: US (occurrence: US)
  Receive Date: 20220429
  Receipt Date: 20220429
  Transmission Date: 20220721
  Serious: No
  Sender: FDA-Public Use
  Company Number: US-ELI_LILLY_AND_COMPANY-US202204004612

PATIENT
  Sex: Female

DRUGS (2)
  1. VERZENIO [Suspect]
     Active Substance: ABEMACICLIB
     Indication: Breast cancer metastatic
     Dosage: 150 MG, BID
     Route: 065
     Dates: start: 20220116, end: 20220302
  2. FASLODEX [Concomitant]
     Active Substance: FULVESTRANT
     Indication: Breast cancer

REACTIONS (14)
  - Blood potassium decreased [Unknown]
  - Weight decreased [Not Recovered/Not Resolved]
  - Illness [Recovered/Resolved]
  - Eating disorder [Recovered/Resolved]
  - Tooth disorder [Recovered/Resolved]
  - Dysstasia [Recovered/Resolved]
  - Blood pressure increased [Unknown]
  - Gait inability [Recovered/Resolved]
  - Dyspnoea [Recovered/Resolved]
  - Vomiting [Recovered/Resolved]
  - Red blood cell count decreased [Unknown]
  - Diarrhoea [Recovered/Resolved]
  - White blood cell count decreased [Unknown]
  - Asthenia [Recovered/Resolved]
